FAERS Safety Report 6152323-6 (Version None)
Quarter: 2009Q2

REPORT INFORMATION
  Report Type: 
  Country: None (occurrence: None)
  Receive Date: 20090413
  Receipt Date: 20070530
  Transmission Date: 20091009
  Serious: Yes (Hospitalization, Other)
  Sender: FDA-Public Use
  Company Number: US-ASTRAZENECA-2006UW21015

PATIENT
  Age: 11958 Day
  Sex: Male
  Weight: 50.5 kg

DRUGS (12)
  1. SEROQUEL [Suspect]
     Indication: HALLUCINATION
     Route: 048
     Dates: start: 20030101
  2. SEROQUEL [Suspect]
     Indication: INSOMNIA
     Route: 048
     Dates: start: 20030101
  3. LEXAPRO [Concomitant]
     Dates: start: 20031223
  4. NORVASC [Concomitant]
  5. VASOTEC [Concomitant]
  6. LOPRESSOR [Concomitant]
  7. ZOLOFT [Concomitant]
  8. ZOCOR [Concomitant]
  9. SPIRONOLACTONE [Concomitant]
  10. FUROSEMIDE [Concomitant]
  11. MINOXIDIL [Concomitant]
  12. PLAVIX [Concomitant]

REACTIONS (13)
  - AZOTAEMIA [None]
  - CARDIAC FAILURE CONGESTIVE [None]
  - CONGESTIVE CARDIOMYOPATHY [None]
  - DIABETES MELLITUS [None]
  - DIABETIC KETOACIDOSIS [None]
  - ERECTILE DYSFUNCTION [None]
  - GASTROOESOPHAGEAL REFLUX DISEASE [None]
  - HYPERTENSION [None]
  - POLYDIPSIA [None]
  - POLYURIA [None]
  - RENAL FAILURE ACUTE [None]
  - TOOTH ABSCESS [None]
  - WEIGHT INCREASED [None]
